FAERS Safety Report 12865105 (Version 1)
Quarter: 2016Q4

REPORT INFORMATION
  Report Type: Spontaneous
  Country: US (occurrence: US)
  Receive Date: 20161019
  Receipt Date: 20161019
  Transmission Date: 20170207
  Serious: Yes (Life-Threatening, Disabling)
  Sender: FDA-Public Use
  Company Number: None

PATIENT
  Age: 6 Year
  Sex: Female
  Weight: 25.4 kg

DRUGS (2)
  1. INSULIN [Suspect]
     Active Substance: INSULIN NOS
  2. INSULIN PUMP DEXCOM G4 SENSOR NOVALOG INSULIN [Concomitant]

REACTIONS (3)
  - Device malfunction [None]
  - Blood glucose decreased [None]
  - Incorrect dose administered by device [None]

NARRATIVE: CASE EVENT DATE: 20161015
